FAERS Safety Report 8388495-2 (Version None)
Quarter: 2012Q2

REPORT INFORMATION
  Report Type: 
  Country: None (occurrence: None)
  Receive Date: 20120525
  Receipt Date: 20120522
  Transmission Date: 20120825
  Serious: Yes (Other)
  Sender: FDA-Public Use
  Company Number: FR-ROCHE-1071509

PATIENT
  Sex: Male

DRUGS (2)
  1. ZELBORAF [Suspect]
     Indication: METASTASES TO CENTRAL NERVOUS SYSTEM
  2. ZELBORAF [Suspect]
     Indication: MALIGNANT MELANOMA
     Dates: start: 20120411, end: 20120514

REACTIONS (1)
  - RENAL FAILURE ACUTE [None]
